FAERS Safety Report 8588502-8 (Version None)
Quarter: 2012Q3

REPORT INFORMATION
  Report Type: 
  Country: None (occurrence: None)
  Receive Date: 20120813
  Receipt Date: 20120803
  Transmission Date: 20120928
  Serious: Yes (Other)
  Sender: FDA-Public Use
  Company Number: US-JNJFOC-20120803491

PATIENT
  Sex: Male
  Weight: 89.81 kg

DRUGS (6)
  1. ASACOL HD [Concomitant]
     Indication: COLITIS ULCERATIVE
     Route: 048
     Dates: start: 20120101
  2. TAMSULOSIN HCL [Concomitant]
     Indication: DYSURIA
     Route: 048
     Dates: start: 20120101
  3. HYOSCYAMINE [Concomitant]
     Indication: MUSCLE SPASMS
     Route: 048
     Dates: start: 19900101
  4. REMICADE [Suspect]
     Indication: COLITIS ULCERATIVE
     Route: 042
     Dates: start: 20120716
  5. AMLODIPINE [Concomitant]
     Indication: HYPERTENSION
     Route: 048
     Dates: start: 20110101
  6. ATORVASTATIN [Concomitant]
     Indication: BLOOD CHOLESTEROL
     Route: 048

REACTIONS (1)
  - BLADDER CANCER [None]
